FAERS Safety Report 7439057-2 (Version None)
Quarter: 2011Q2

REPORT INFORMATION
  Report Type: 
  Country: None (occurrence: None)
  Receive Date: 20110427
  Receipt Date: 20110418
  Transmission Date: 20111010
  Serious: No
  Sender: FDA-Public Use
  Company Number: US-BIOGENIDEC-2011BI014801

PATIENT
  Sex: Female

DRUGS (1)
  1. AVONEX [Suspect]
     Indication: MULTIPLE SCLEROSIS
     Route: 030
     Dates: start: 20110317

REACTIONS (10)
  - HEAD INJURY [None]
  - ARTHRITIS [None]
  - GAIT DISTURBANCE [None]
  - PAIN [None]
  - MOBILITY DECREASED [None]
  - FATIGUE [None]
  - DIPLOPIA [None]
  - VISUAL IMPAIRMENT [None]
  - BACK PAIN [None]
  - CARPAL TUNNEL SYNDROME [None]
